FAERS Safety Report 16874866 (Version 1)
Quarter: 2019Q4

REPORT INFORMATION
  Report Type: Report from Study
  Country: US (occurrence: US)
  Receive Date: 20191001
  Receipt Date: 20191001
  Transmission Date: 20200122
  Serious: Yes (Hospitalization)
  Sender: FDA-Public Use
  Company Number: US-TEVA-2019-US-1114835

PATIENT
  Sex: Male
  Weight: 177 kg

DRUGS (6)
  1. VINCRISTINE SULFATE. [Suspect]
     Active Substance: VINCRISTINE SULFATE
     Indication: B PRECURSOR TYPE ACUTE LEUKAEMIA
     Dosage: UNK, CYCLIC (TOTAL DOSE ADMINISTERED THIS COURSE: 4 MG)
     Route: 065
     Dates: start: 20190730, end: 20190806
  2. CYTARABINE. [Suspect]
     Active Substance: CYTARABINE
     Indication: B PRECURSOR TYPE ACUTE LEUKAEMIA
     Dosage: UNK, CYCLIC (TOTAL DOSE ADMINISTERED THIS COURSE 70 MG)
     Route: 065
     Dates: start: 20190723, end: 20190723
  3. DEXAMETHASONE. [Suspect]
     Active Substance: DEXAMETHASONE
     Indication: B PRECURSOR TYPE ACUTE LEUKAEMIA
     Dosage: UNK, CYCLIC (TOTAL DOSE ADMINISTERED THIS COURSE: 206.5 MG)
     Route: 065
     Dates: start: 20190723, end: 20190812
  4. DAUNORUBICIN [Suspect]
     Active Substance: DAUNORUBICIN
     Indication: B PRECURSOR TYPE ACUTE LEUKAEMIA
     Dosage: UNK, CYCLIC (TOTAL DOSE ADMINISTERED THIS COURSE: 148 MG)
     Route: 065
     Dates: start: 20190730, end: 20190806
  5. METHOTREXATE SODIUM. [Suspect]
     Active Substance: METHOTREXATE SODIUM
     Indication: B PRECURSOR TYPE ACUTE LEUKAEMIA
     Dosage: UNK, CYCLIC (TOTAL DOSE ADMINISTERED THIS COURSE: 15 MG)
     Route: 065
     Dates: start: 20190730, end: 20190730
  6. PEGASPARGASE [Suspect]
     Active Substance: PEGASPARGASE
     Indication: B PRECURSOR TYPE ACUTE LEUKAEMIA
     Dosage: UNK, CYCLIC (TOTAL DOSE ADMINISTERED THIS COURSE: 3750 UNIT)
     Route: 065
     Dates: start: 20190726, end: 20190726

REACTIONS (1)
  - Blood bilirubin increased [Not Recovered/Not Resolved]

NARRATIVE: CASE EVENT DATE: 20190813
